FAERS Safety Report 11819143 (Version 1)
Quarter: 2015Q4

REPORT INFORMATION
  Report Type: Spontaneous
  Country: US (occurrence: None)
  Receive Date: 20151209
  Receipt Date: 20151209
  Transmission Date: 20160305
  Serious: Yes (Hospitalization)
  Sender: FDA-Public Use
  Company Number: None

PATIENT
  Age: 86 Year
  Sex: Male
  Weight: 63.3 kg

DRUGS (8)
  1. ENTOCORT [Concomitant]
     Active Substance: BUDESONIDE
  2. ECOTRIN [Suspect]
     Active Substance: ASPIRIN
     Indication: CORONARY ARTERY DISEASE
     Dosage: CHRONIC
     Route: 048
  3. APAP [Concomitant]
     Active Substance: ACETAMINOPHEN
  4. LOMOTIL [Concomitant]
     Active Substance: ATROPINE SULFATE\DIPHENOXYLATE HYDROCHLORIDE
  5. ZETIA [Concomitant]
     Active Substance: EZETIMIBE
  6. COREG [Concomitant]
     Active Substance: CARVEDILOL
  7. ULTRAM [Concomitant]
     Active Substance: TRAMADOL HYDROCHLORIDE
  8. COUMADIN [Suspect]
     Active Substance: WARFARIN SODIUM
     Indication: ATRIAL FIBRILLATION
     Dosage: 2.5 MG  Q FRIDAY ?5MG   Q MTWTHSS?CHRONIC

REACTIONS (5)
  - Intracranial aneurysm [None]
  - International normalised ratio increased [None]
  - Fall [None]
  - Subarachnoid haemorrhage [None]
  - Neurological decompensation [None]

NARRATIVE: CASE EVENT DATE: 20150715
